FAERS Safety Report 11122814 (Version 3)
Quarter: 2015Q4

REPORT INFORMATION
  Report Type: Spontaneous
  Country: US (occurrence: US)
  Receive Date: 20150519
  Receipt Date: 20151006
  Transmission Date: 20160304
  Serious: No
  Sender: FDA-Public Use
  Company Number: US-PFIZER INC-2015165294

PATIENT
  Age: 74 Year
  Sex: Female
  Weight: 102 kg

DRUGS (1)
  1. NORVASC [Suspect]
     Active Substance: AMLODIPINE BESYLATE
     Indication: HYPERTENSION
     Dosage: 5 MG, 1X/DAY
     Dates: start: 201405

REACTIONS (2)
  - Hair growth abnormal [Not Recovered/Not Resolved]
  - Premature ageing [Not Recovered/Not Resolved]

NARRATIVE: CASE EVENT DATE: 2015
